FAERS Safety Report 14769355 (Version 1)
Quarter: 2018Q2

REPORT INFORMATION
  Report Type: Not Available
  Country: GB (occurrence: GB)
  Receive Date: 20180417
  Receipt Date: 20180417
  Transmission Date: 20180711
  Serious: Yes (Disabling)
  Sender: FDA-Public Use
  Company Number: GB-SYNTHON BV-NL01PV18_46824

PATIENT
  Age: 71 Year
  Sex: Male
  Weight: 112 kg

DRUGS (9)
  1. CANDESARTAN. [Concomitant]
     Active Substance: CANDESARTAN
     Dosage: 1 DF, DAILY
     Dates: start: 20130107
  2. CLOTRIMAZOLE. [Concomitant]
     Active Substance: CLOTRIMAZOLE
     Dosage: APPLY 2-3 TIMES/DAY
     Dates: start: 20180316
  3. BETAMETHASONE VALERATE. [Concomitant]
     Active Substance: BETAMETHASONE VALERATE
     Dosage: 2 DF, DAILY (APPLY)
     Dates: start: 20130923
  4. TAMSULOSIN [Suspect]
     Active Substance: TAMSULOSIN
     Dosage: UNK
     Dates: start: 20180316
  5. AMLODIPINE [Concomitant]
     Active Substance: AMLODIPINE BESYLATE
     Dosage: 1 DF, DAILY
     Dates: start: 20150625
  6. BISOPROLOL [Concomitant]
     Active Substance: BISOPROLOL
     Dosage: 2 KG, DAILY
     Dates: start: 20130107
  7. ATORVASTATIN [Concomitant]
     Active Substance: ATORVASTATIN
     Dosage: 1 DF, DAILY
     Dates: start: 20150625
  8. LEVOTHYROXINE. [Concomitant]
     Active Substance: LEVOTHYROXINE
     Dosage: 1 DF, DAILY
     Dates: start: 20170913
  9. OMEPRAZOLE. [Concomitant]
     Active Substance: OMEPRAZOLE
     Dosage: 1 DF, UNK
     Dates: start: 20130107

REACTIONS (4)
  - Hypertension [Unknown]
  - Vision blurred [Recovered/Resolved]
  - Malaise [Recovered/Resolved]
  - Dyspnoea [Recovering/Resolving]

NARRATIVE: CASE EVENT DATE: 20180323
